FAERS Safety Report 9529945 (Version 2)
Quarter: 2013Q4

REPORT INFORMATION
  Report Type: Spontaneous
  Country: US (occurrence: US)
  Receive Date: 20130917
  Receipt Date: 20131001
  Transmission Date: 20140711
  Serious: Yes (Other)
  Sender: FDA-Public Use
  Company Number: ALCN2013US004583

PATIENT
  Age: 70 Year
  Sex: Male

DRUGS (2)
  1. BSS [Suspect]
     Dosage: UNK
     Route: 031
     Dates: start: 20130722, end: 20130722
  2. EPINEPHRINE [Concomitant]
     Dosage: UNK
     Route: 031
     Dates: start: 20130722, end: 20130722

REACTIONS (2)
  - Toxic anterior segment syndrome [Recovered/Resolved]
  - Off label use [Recovered/Resolved]
